FAERS Safety Report 20299540 (Version 2)
Quarter: 2022Q1

REPORT INFORMATION
  Report Type: Spontaneous
  Country: DE (occurrence: DE)
  Receive Date: 20220105
  Receipt Date: 20220201
  Transmission Date: 20220423
  Serious: Yes (Life-Threatening, Other)
  Sender: FDA-Public Use
  Company Number: DE-PFIZER INC-202101862700

PATIENT
  Age: 27 Year
  Sex: Male
  Weight: 63 kg

DRUGS (6)
  1. GEMTUZUMAB OZOGAMICIN [Suspect]
     Active Substance: GEMTUZUMAB OZOGAMICIN
     Indication: Acute myeloid leukaemia
     Dosage: 3 MG/M2 (08DEC, 11DEC, 14DEC)
     Route: 042
     Dates: start: 20211208, end: 20211210
  2. CYTARABINE [Concomitant]
     Active Substance: CYTARABINE
     Dosage: 200 MG/M2
     Route: 042
     Dates: start: 20211208, end: 20211214
  3. DAUNORUBICIN [Concomitant]
     Active Substance: DAUNORUBICIN
     Dosage: 60 MG/M2
     Route: 042
     Dates: start: 20211208, end: 20211210
  4. PIPERACILLIN SODIUM\TAZOBACTAM SODIUM [Concomitant]
     Active Substance: PIPERACILLIN SODIUM\TAZOBACTAM SODIUM
     Indication: Pyrexia
     Dosage: 4.5 G, 4X/DAY
     Route: 042
     Dates: start: 20211216, end: 20211220
  5. PIPERACILLIN SODIUM\TAZOBACTAM SODIUM [Concomitant]
     Active Substance: PIPERACILLIN SODIUM\TAZOBACTAM SODIUM
     Indication: Aplasia
  6. MEROPENEM [Concomitant]
     Active Substance: MEROPENEM
     Dosage: 1 G, 3X/DAY
     Route: 042
     Dates: start: 20211230

REACTIONS (3)
  - Haemophagocytic lymphohistiocytosis [Recovered/Resolved]
  - Refractoriness to platelet transfusion [Unknown]
  - Pyrexia [Recovered/Resolved]

NARRATIVE: CASE EVENT DATE: 20211216
